FAERS Safety Report 20978387 (Version 1)
Quarter: 2022Q2

REPORT INFORMATION
  Report Type: Spontaneous
  Country: US (occurrence: US)
  Receive Date: 20220618
  Receipt Date: 20220618
  Transmission Date: 20220720
  Serious: No
  Sender: FDA-Public Use
  Company Number: US-SANOFI-01143156

PATIENT
  Age: 68 Year
  Sex: Male

DRUGS (2)
  1. TOUJEO [Suspect]
     Active Substance: INSULIN GLARGINE
     Indication: Diabetes mellitus
     Dosage: 26 U, QD
  2. TOUJEO [Suspect]
     Active Substance: INSULIN GLARGINE
     Dosage: 10 U

REACTIONS (1)
  - Incorrect dose administered [Unknown]
